FAERS Safety Report 8387873-5 (Version None)
Quarter: 2012Q2

REPORT INFORMATION
  Report Type: 
  Country: None (occurrence: None)
  Receive Date: 20120525
  Receipt Date: 20120521
  Transmission Date: 20120825
  Serious: Yes (Other)
  Sender: FDA-Public Use
  Company Number: JP-NOVOPROD-352242

PATIENT
  Age: 29 Year
  Sex: Female

DRUGS (1)
  1. NORDITROPIN FLEXPROCHU 10 MG/ML [Suspect]
     Indication: TURNER'S SYNDROME
     Dosage: UNK
     Route: 058

REACTIONS (2)
  - SCOLIOSIS [None]
  - CONDITION AGGRAVATED [None]
